FAERS Safety Report 4597100-2 (Version None)
Quarter: 2005Q1

REPORT INFORMATION
  Report Type: 
  Country: None (occurrence: None)
  Receive Date: 20050301
  Receipt Date: 20050216
  Transmission Date: 20050727
  Serious: Yes (Other)
  Sender: FDA-Public Use
  Company Number: 2005036665

PATIENT
  Age: 57 Year
  Sex: Female

DRUGS (3)
  1. CEFOPERAZONE/SULBACTAM (SULBACTAM CEFOPERAZONE) [Suspect]
     Indication: URINARY TRACT INFECTION
     Dosage: INTRAVENOUS
     Route: 042
     Dates: start: 20010101
  2. MEROPENEM (MEROPENEM) [Suspect]
     Indication: URINARY TRACT INFECTION
     Dosage: INTRAVENOUS
     Route: 042
     Dates: start: 20010101
  3. VANCOMYCIN [Suspect]
     Indication: ILL-DEFINED DISORDER
     Dates: start: 20010701, end: 20010101

REACTIONS (5)
  - FISTULA [None]
  - GRANULOCYTE COUNT DECREASED [None]
  - STAPHYLOCOCCAL INFECTION [None]
  - UPPER RESPIRATORY TRACT INFLAMMATION [None]
  - WOUND SECRETION [None]
